FAERS Safety Report 10932197 (Version 2)
Quarter: 2015Q2

REPORT INFORMATION
  Report Type: Spontaneous
  Country: US (occurrence: US)
  Receive Date: 20150320
  Receipt Date: 20150526
  Transmission Date: 20150821
  Serious: Yes (Other)
  Sender: FDA-Public Use
  Company Number: US-JNJFOC-20140816560

PATIENT
  Age: 33 Year
  Sex: Female
  Weight: 83.01 kg

DRUGS (1)
  1. RISPERIDONE. [Suspect]
     Active Substance: RISPERIDONE
     Indication: PRODUCT USED FOR UNKNOWN INDICATION
     Route: 048
     Dates: end: 201407

REACTIONS (3)
  - Amenorrhoea [Not Recovered/Not Resolved]
  - Trichomoniasis [Not Recovered/Not Resolved]
  - Blood prolactin increased [Unknown]

NARRATIVE: CASE EVENT DATE: 2014
